FAERS Safety Report 10076571 (Version 1)
Quarter: 2014Q2

REPORT INFORMATION
  Report Type: Spontaneous
  Country: US (occurrence: US)
  Receive Date: 20140414
  Receipt Date: 20140414
  Transmission Date: 20141212
  Serious: No
  Sender: FDA-Public Use
  Company Number: US-PFIZER INC-2014102929

PATIENT
  Age: 56 Year
  Sex: Female
  Weight: 94.33 kg

DRUGS (5)
  1. CELEBREX [Suspect]
     Indication: ARTHRITIS
     Dosage: UNK
     Dates: start: 200901, end: 2010
  2. OMEPRAZOLE [Concomitant]
     Indication: GASTRIC DISORDER
     Dosage: 20 MG, 1X/DAY
  3. CARVEDILOL [Concomitant]
     Dosage: 3.125 MG, 2X/DAY
  4. TYLENOL W/CODEINE NO. 3 [Concomitant]
     Dosage: UNK
  5. DIAZEPAM [Concomitant]
     Indication: ANXIETY
     Dosage: 5 MG

REACTIONS (3)
  - Gait disturbance [Unknown]
  - Mobility decreased [Unknown]
  - Pain in extremity [Unknown]
